FAERS Safety Report 13529035 (Version 1)
Quarter: 2017Q2

REPORT INFORMATION
  Report Type: Report from Study
  Country: US (occurrence: US)
  Receive Date: 20170509
  Receipt Date: 20170509
  Transmission Date: 20170830
  Serious: Yes (Hospitalization)
  Sender: FDA-Public Use
  Company Number: US-PROMETHEUS LABORATORIES-2017PL000038

PATIENT
  Age: 48 Year
  Sex: Male

DRUGS (2)
  1. PROLEUKIN [Suspect]
     Active Substance: ALDESLEUKIN
     Indication: RENAL CELL CARCINOMA
     Dosage: 600 KIU, EVERY 8 HOURS
     Route: 042
     Dates: start: 20111024, end: 20111028
  2. PROLEUKIN [Suspect]
     Active Substance: ALDESLEUKIN
     Dosage: 600 KIU, EVERY 8 HOURS
     Route: 042
     Dates: start: 20111107, end: 20111111

REACTIONS (7)
  - Autoimmune myocarditis [Recovered/Resolved]
  - Acute kidney injury [Recovered/Resolved]
  - Thrombocytopenia [Recovered/Resolved]
  - Acute kidney injury [Recovered/Resolved]
  - Dyspnoea exertional [Recovered/Resolved]
  - Shock [Recovered/Resolved]
  - Disease progression [Not Recovered/Not Resolved]

NARRATIVE: CASE EVENT DATE: 201110
